FAERS Safety Report 4598573-1 (Version None)
Quarter: 2005Q1

REPORT INFORMATION
  Report Type: 
  Country: None (occurrence: None)
  Receive Date: 20050204
  Receipt Date: 20041027
  Transmission Date: 20050727
  Serious: Yes (Hospitalization)
  Sender: FDA-Public Use
  Company Number: PHEH2004US11590

PATIENT
  Age: 46 Year
  Sex: Female

DRUGS (4)
  1. CLOZARIL [Suspect]
     Dosage: 750 MG, QD, ORAL
     Route: 048
  2. VALPROIC ACID [Concomitant]
  3. TOPAMAX [Concomitant]
  4. AMANTADINE HCL [Concomitant]

REACTIONS (1)
  - PULMONARY EMBOLISM [None]
